FAERS Safety Report 24388060 (Version 1)
Quarter: 2024Q4

REPORT INFORMATION
  Report Type: Spontaneous
  Country: US (occurrence: US)
  Receive Date: 20241002
  Receipt Date: 20241002
  Transmission Date: 20250115
  Serious: No
  Sender: TAIHO ONCOLOGY INC
  Company Number: US-TAIHOP-2024-009043

PATIENT
  Age: 73 Year
  Sex: Female

DRUGS (2)
  1. LYTGOBI [Suspect]
     Active Substance: FUTIBATINIB
     Indication: Cholangiocarcinoma
     Dosage: FORM STRENGTH WASUNKNOWN.?4 PILLS
     Route: 048
  2. LYTGOBI [Suspect]
     Active Substance: FUTIBATINIB
     Dosage: FORM STRENGTH WERE UNKNOWN.?3 PILLS
     Route: 048
     Dates: start: 20240729

REACTIONS (2)
  - Stomatitis [Unknown]
  - Diarrhoea [Unknown]
